FAERS Safety Report 5800910-4 (Version None)
Quarter: 2008Q3

REPORT INFORMATION
  Report Type: 
  Country: None (occurrence: None)
  Receive Date: 20080701
  Receipt Date: 20080619
  Transmission Date: 20090109
  Serious: Yes (Death)
  Sender: FDA-Public Use
  Company Number: 000560

PATIENT
  Age: 44 Year
  Sex: Male

DRUGS (7)
  1. BUSULFEX [Suspect]
     Indication: STEM CELL TRANSPLANT
     Dosage: 5 ML, TID, INTRAVENOUS; 8.5 ML, QID; INTRAVENOUS; 8.5 ML, SINGLE; INTRAVENOUS
     Route: 042
     Dates: start: 20061212, end: 20061212
  2. BUSULFEX [Suspect]
     Indication: STEM CELL TRANSPLANT
     Dosage: 5 ML, TID, INTRAVENOUS; 8.5 ML, QID; INTRAVENOUS; 8.5 ML, SINGLE; INTRAVENOUS
     Route: 042
     Dates: start: 20061213, end: 20061215
  3. BUSULFEX [Suspect]
     Indication: STEM CELL TRANSPLANT
     Dosage: 5 ML, TID, INTRAVENOUS; 8.5 ML, QID; INTRAVENOUS; 8.5 ML, SINGLE; INTRAVENOUS
     Route: 042
     Dates: start: 20061216, end: 20061216
  4. NARTOGRASTIM (NARTOGRASTIM) [Suspect]
     Dates: start: 20061220, end: 20070115
  5. TACROLIMUS (TAROLIMUS) [Suspect]
  6. PHENYTOIN [Concomitant]
  7. CYCLOPHOSPHAMIDE [Concomitant]

REACTIONS (5)
  - ACUTE GRAFT VERSUS HOST DISEASE [None]
  - DIARRHOEA [None]
  - ENCEPHALITIS VIRAL [None]
  - MALAISE [None]
  - SEPTIC SHOCK [None]
